FAERS Safety Report 15296162 (Version 1)
Quarter: 2018Q3

REPORT INFORMATION
  Report Type: Spontaneous
  Country: US (occurrence: US)
  Receive Date: 20180807
  Receipt Date: 20180807
  Transmission Date: 20181010
  Serious: Yes (Other)
  Sender: FDA-Public Use
  Company Number: None

PATIENT
  Age: 37 Year
  Sex: Female
  Weight: 6.35 kg

DRUGS (7)
  1. VENALAFAXIBNE HYDROCHLORIDE EXTENDED CAPSULES RELEASE 150MG [Suspect]
     Active Substance: VENLAFAXINE HYDROCHLORIDE
     Indication: BIPOLAR DISORDER
     Dosage: ?          QUANTITY:3 DF DOSAGE FORM;?
     Route: 048
     Dates: start: 20180626, end: 20180627
  2. FOLIC ACID. [Concomitant]
     Active Substance: FOLIC ACID
  3. LEVOTHYROXINE. [Concomitant]
     Active Substance: LEVOTHYROXINE
  4. LAMICTAL [Concomitant]
     Active Substance: LAMOTRIGINE
  5. PRENATAL VITAMINS [Concomitant]
     Active Substance: VITAMINS
  6. WELLBUTRIN [Concomitant]
     Active Substance: BUPROPION HYDROCHLORIDE
  7. VENLAFAXINE ER [Concomitant]
     Active Substance: VENLAFAXINE HYDROCHLORIDE

REACTIONS (8)
  - Diarrhoea [None]
  - Vomiting in pregnancy [None]
  - Dizziness [None]
  - Headache [None]
  - Fatigue [None]
  - Drug dispensing error [None]
  - Hyperhidrosis [None]
  - Wrong drug administered [None]

NARRATIVE: CASE EVENT DATE: 20180627
